FAERS Safety Report 14055876 (Version 1)
Quarter: 2017Q4

REPORT INFORMATION
  Report Type: Spontaneous
  Country: US (occurrence: US)
  Receive Date: 20171006
  Receipt Date: 20171006
  Transmission Date: 20180321
  Serious: Yes (Other)
  Sender: FDA-Public Use
  Company Number: US-APOTEX-2017AP019229

PATIENT
  Age: 9 Year
  Sex: Male

DRUGS (5)
  1. TOPIRAMATE. [Suspect]
     Active Substance: TOPIRAMATE
     Indication: EPILEPSY
     Route: 065
  2. STIRIPENTOL [Suspect]
     Active Substance: STIRIPENTOL
     Indication: EPILEPSY
     Route: 065
  3. LEVETIRACETAM. [Suspect]
     Active Substance: LEVETIRACETAM
     Indication: EPILEPSY
     Route: 065
  4. VALPROATE [Suspect]
     Active Substance: VALPROIC ACID
     Indication: EPILEPSY
     Route: 065
  5. GARDENAL                           /00023201/ [Suspect]
     Active Substance: PHENOBARBITAL
     Indication: EPILEPSY
     Route: 065

REACTIONS (1)
  - Drug resistance [Unknown]
